FAERS Safety Report 16193410 (Version 1)
Quarter: 2019Q2

REPORT INFORMATION
  Report Type: Spontaneous
  Country: GB (occurrence: GB)
  Receive Date: 20190413
  Receipt Date: 20190413
  Transmission Date: 20190711
  Serious: Yes (Other)
  Sender: FDA-Public Use
  Company Number: GB-TEVA-2019-GB-1036373

PATIENT
  Age: 2 Day
  Sex: Female

DRUGS (6)
  1. PARACETAMOL [Concomitant]
     Active Substance: ACETAMINOPHEN
     Route: 064
  2. IBUPROFEN. [Concomitant]
     Active Substance: IBUPROFEN
     Route: 064
  3. CLINDAMYCIN. [Suspect]
     Active Substance: CLINDAMYCIN
     Indication: SEPSIS
     Dosage: IV FOR 3 DOSES THEN ORAL FOR 2
     Route: 063
     Dates: start: 20190307, end: 20190309
  4. BENZYLPENICILLIN [Suspect]
     Active Substance: PENICILLIN G
     Indication: INFECTION PROPHYLAXIS
     Route: 042
     Dates: end: 20190309
  5. GENTAMICIN. [Suspect]
     Active Substance: GENTAMICIN
     Indication: INFECTION PROPHYLAXIS
     Route: 042
     Dates: end: 20190309
  6. TRAMADOL HYDROCHLORIDE. [Concomitant]
     Active Substance: TRAMADOL HYDROCHLORIDE
     Route: 064

REACTIONS (2)
  - Diarrhoea [Recovered/Resolved]
  - Maternal exposure during breast feeding [Unknown]

NARRATIVE: CASE EVENT DATE: 20190308
